FAERS Safety Report 12469558 (Version 1)
Quarter: 2016Q2

REPORT INFORMATION
  Report Type: Report from Study
  Country: US (occurrence: US)
  Receive Date: 20160615
  Receipt Date: 20160615
  Transmission Date: 20160815
  Serious: No
  Sender: FDA-Public Use
  Company Number: PHEH2016US014138

PATIENT
  Age: 43 Year
  Sex: Female

DRUGS (1)
  1. GILENYA [Suspect]
     Active Substance: FINGOLIMOD HYDROCHLORIDE
     Indication: MULTIPLE SCLEROSIS
     Dosage: 0.5 MG, QD
     Route: 048

REACTIONS (5)
  - Musculoskeletal stiffness [Unknown]
  - Hypoaesthesia [Unknown]
  - Asthenia [Unknown]
  - Hypokinesia [Unknown]
  - Dysgraphia [Unknown]

NARRATIVE: CASE EVENT DATE: 20160604
